FAERS Safety Report 9078231 (Version 1)
Quarter: 2013Q1

REPORT INFORMATION
  Report Type: Report from Study
  Country: US (occurrence: US)
  Receive Date: 20130130
  Receipt Date: 20130130
  Transmission Date: 20140127
  Serious: No
  Sender: FDA-Public Use
  Company Number: US-ABBOTT-12P-163-0964916-00

PATIENT
  Age: 69 Year
  Sex: Female

DRUGS (10)
  1. HUMIRA 40 MG/0.8 ML PEN [Suspect]
     Indication: PSORIASIS
     Dates: start: 20120615
  2. LANTUS [Concomitant]
     Indication: DIABETES MELLITUS
     Dosage: 60 UNITS IN THE MORNING AND 100 UNITS AT BEDTIME
  3. NOVALOG [Concomitant]
     Indication: DIABETES MELLITUS
     Dosage: 15 UNITS AT BREAKFAST, 10 UNITS AT LUNCH AND 20 UNITS AT DINNER
  4. PRAVASTATIN [Concomitant]
     Indication: BLOOD CHOLESTEROL INCREASED
     Dosage: 40MG DAILY AT BEDTIME
  5. AMITRIPTYLINE [Concomitant]
     Indication: INSOMNIA
     Dosage: 50MG 1 AT BEDTIME
  6. LISINOPRIL [Concomitant]
     Indication: DIABETIC NEPHROPATHY
     Dosage: 20MG DAILY
  7. OMEPRAZOLE [Concomitant]
     Indication: ULCER
     Dosage: 20MG DAILY
  8. METFORMIN [Concomitant]
     Indication: DIABETES MELLITUS
     Dosage: 1000MG TWICE A DAY
  9. METROCLOPRAMIDE [Concomitant]
     Indication: ULCER
     Dosage: 10MG 4 TABLETS AT MEAL TIME AND 1 AT BEDTIME
  10. METROPROLOL [Concomitant]
     Indication: HEART RATE INCREASED
     Dosage: 25MG 1 DAILY

REACTIONS (1)
  - Psoriasis [Not Recovered/Not Resolved]
